FAERS Safety Report 4657602-7 (Version None)
Quarter: 2005Q2

REPORT INFORMATION
  Report Type: 
  Country: None (occurrence: None)
  Receive Date: 20050405
  Receipt Date: 20040511
  Transmission Date: 20051028
  Serious: Yes (Hospitalization)
  Sender: FDA-Public Use
  Company Number: 2004032279

PATIENT
  Sex: Female

DRUGS (1)
  1. GEODON [Suspect]
     Indication: SCHIZOPHRENIA, PARANOID TYPE
     Dosage: 120 MG (60 MG, 2 IN 1 D)

REACTIONS (2)
  - INSOMNIA [None]
  - SOCIAL AVOIDANT BEHAVIOUR [None]
